FAERS Safety Report 11622092 (Version 1)
Quarter: 2015Q4

REPORT INFORMATION
  Report Type: Spontaneous
  Country: US (occurrence: US)
  Receive Date: 20151013
  Receipt Date: 20151013
  Transmission Date: 20160304
  Serious: No
  Sender: FDA-Public Use
  Company Number: US-JNJFOC-20150111291

PATIENT
  Age: 8 Month
  Sex: Male
  Weight: 7.71 kg

DRUGS (2)
  1. INFANTS TYLENOL [Suspect]
     Active Substance: ACETAMINOPHEN
     Route: 048
  2. INFANTS TYLENOL [Suspect]
     Active Substance: ACETAMINOPHEN
     Indication: PRODUCT USED FOR UNKNOWN INDICATION
     Dosage: 7 DOSES IN 30 HOURS
     Route: 048
     Dates: start: 20090719

REACTIONS (1)
  - Incorrect dose administered [Unknown]
